FAERS Safety Report 16913479 (Version 1)
Quarter: 2019Q4

REPORT INFORMATION
  Report Type: Spontaneous
  Country: US (occurrence: US)
  Receive Date: 20190821
  Receipt Date: 20190821
  Transmission Date: 20200122
  Serious: No
  Sender: FDA-Public Use
  Company Number: None

PATIENT
  Age: 59 Year
  Sex: Female

DRUGS (1)
  1. XOLAIR [Suspect]
     Active Substance: OMALIZUMAB
     Indication: URTICARIA

REACTIONS (4)
  - Weight increased [None]
  - Drug hypersensitivity [None]
  - Anaphylactic reaction [None]
  - Renal failure [None]

NARRATIVE: CASE EVENT DATE: 20190820
